FAERS Safety Report 20629407 (Version 5)
Quarter: 2024Q1

REPORT INFORMATION
  Report Type: Other
  Country: JP (occurrence: JP)
  Receive Date: 20220323
  Receipt Date: 20240222
  Transmission Date: 20240410
  Serious: Yes (Death, Hospitalization)
  Sender: FDA-Public Use
  Company Number: JP-CHUGAI-2022003844

PATIENT
  Age: 80 Year
  Sex: Female
  Weight: 45.2 kg

DRUGS (6)
  1. TECENTRIQ [Suspect]
     Active Substance: ATEZOLIZUMAB
     Indication: Hepatocellular carcinoma
     Route: 041
     Dates: start: 20220127, end: 20220217
  2. AVASTIN [Suspect]
     Active Substance: BEVACIZUMAB
     Indication: Hepatocellular carcinoma
     Route: 041
     Dates: start: 20220127, end: 20220217
  3. URSODIOL [Concomitant]
     Active Substance: URSODIOL
     Indication: Primary biliary cholangitis
     Dosage: 200 MILLIGRAM, TID
     Route: 048
  4. ASPIRIN [Concomitant]
     Active Substance: ASPIRIN
     Indication: Cerebral infarction
     Dosage: 100 MILLIGRAM, QD
     Route: 048
  5. DORAL [Concomitant]
     Active Substance: QUAZEPAM
     Indication: Insomnia
     Dosage: 15 MILLIGRAM, QD
     Route: 048
  6. BROTIZOLAM [Concomitant]
     Active Substance: BROTIZOLAM
     Indication: Insomnia
     Dosage: 0.25 MILLIGRAM, QD
     Route: 048

REACTIONS (9)
  - Hypertension [Recovering/Resolving]
  - Chronic hepatitis B [Recovering/Resolving]
  - Myositis [Recovered/Resolved]
  - Hypothyroidism [Recovered/Resolved]
  - Cough [Recovered/Resolved]
  - Fatigue [Recovered/Resolved]
  - Hypoalbuminaemia [Recovering/Resolving]
  - Hepatocellular carcinoma [Fatal]
  - Proteinuria [Unknown]

NARRATIVE: CASE EVENT DATE: 20220203
